FAERS Safety Report 13085015 (Version 1)
Quarter: 2017Q1

REPORT INFORMATION
  Report Type: Spontaneous
  Country: US (occurrence: US)
  Receive Date: 20170104
  Receipt Date: 20170104
  Transmission Date: 20170428
  Serious: No
  Sender: FDA-Public Use
  Company Number: US-BIOMARINAP-US-2016-110116

PATIENT
  Age: 52 Year
  Sex: Female

DRUGS (1)
  1. VIMIZIM [Suspect]
     Active Substance: ELOSULFASE ALFA
     Indication: MUCOPOLYSACCHARIDOSIS IV
     Dosage: 205 MG, QW
     Route: 042
     Dates: start: 20140318

REACTIONS (7)
  - Pain in extremity [Unknown]
  - Swelling face [Unknown]
  - Ear infection [Unknown]
  - Dizziness [Unknown]
  - Peripheral swelling [Unknown]
  - Tympanic membrane disorder [Unknown]
  - Pain [Unknown]

NARRATIVE: CASE EVENT DATE: 20160630
